FAERS Safety Report 16343647 (Version 2)
Quarter: 2019Q3

REPORT INFORMATION
  Report Type: Spontaneous
  Country: US (occurrence: US)
  Receive Date: 20190522
  Receipt Date: 20190701
  Transmission Date: 20191004
  Serious: No
  Sender: FDA-Public Use
  Company Number: US-PFIZER INC-2019213920

PATIENT
  Age: 72 Year
  Sex: Male
  Weight: 90.72 kg

DRUGS (2)
  1. ADVIL [Suspect]
     Active Substance: IBUPROFEN
     Indication: PAIN
  2. ADVIL [Suspect]
     Active Substance: IBUPROFEN
     Indication: ARTHRALGIA
     Dosage: 2 DF, EVERY 4 HRS

REACTIONS (2)
  - Epigastric discomfort [Unknown]
  - Drug ineffective [Not Recovered/Not Resolved]
